FAERS Safety Report 11018646 (Version 2)
Quarter: 2015Q2

REPORT INFORMATION
  Report Type: Spontaneous
  Country: US (occurrence: US)
  Receive Date: 20150412
  Receipt Date: 20150524
  Transmission Date: 20150821
  Serious: No
  Sender: FDA-Public Use
  Company Number: US-JNJFOC-20130613250

PATIENT

DRUGS (7)
  1. DOXORUBICIN [Suspect]
     Active Substance: DOXORUBICIN
     Indication: BREAST CANCER
     Route: 042
  2. CYCLOPHOSPHAMIDE. [Suspect]
     Active Substance: CYCLOPHOSPHAMIDE
     Indication: BREAST CANCER
     Route: 065
  3. DOLASETRON [Suspect]
     Active Substance: DOLASETRON
     Indication: PROPHYLAXIS OF NAUSEA AND VOMITING
     Route: 065
  4. EPIRUBICIN [Suspect]
     Active Substance: EPIRUBICIN
     Indication: BREAST CANCER
     Route: 065
  5. GRANISETRON [Suspect]
     Active Substance: GRANISETRON
     Indication: PROPHYLAXIS OF NAUSEA AND VOMITING
     Route: 065
  6. ONDANSETRON [Suspect]
     Active Substance: ONDANSETRON
     Indication: PROPHYLAXIS OF NAUSEA AND VOMITING
     Route: 065
  7. PALONOSETRON [Suspect]
     Active Substance: PALONOSETRON
     Indication: PROPHYLAXIS OF NAUSEA AND VOMITING
     Dosage: 0.25 OR 0.75 MG
     Route: 042

REACTIONS (2)
  - Constipation [Unknown]
  - Headache [Unknown]
